FAERS Safety Report 17957504 (Version 1)
Quarter: 2020Q2

REPORT INFORMATION
  Report Type: Spontaneous
  Country: US (occurrence: US)
  Receive Date: 20200629
  Receipt Date: 20200629
  Transmission Date: 20200714
  Serious: No
  Sender: FDA-Public Use
  Company Number: US-009507513-2006USA009978

PATIENT
  Age: 42 Year
  Sex: Female
  Weight: 75 kg

DRUGS (5)
  1. INVANZ [Suspect]
     Active Substance: ERTAPENEM SODIUM
     Indication: DRUG DETOXIFICATION
     Dosage: 1 GRAM
     Route: 042
  2. DIVALPROEX SODIUM. [Interacting]
     Active Substance: DIVALPROEX SODIUM
     Dosage: 26 GRAM
  3. CHARCOAL, ACTIVATED [Concomitant]
     Active Substance: ACTIVATED CHARCOAL
     Dosage: 75 GRAM
  4. INVANZ [Interacting]
     Active Substance: ERTAPENEM SODIUM
     Indication: PNEUMONIA ASPIRATION
  5. QUETIAPINE FUMARATE. [Concomitant]
     Active Substance: QUETIAPINE FUMARATE
     Dosage: 20 GRAM
     Route: 048

REACTIONS (2)
  - Drug interaction [Unknown]
  - Off label use [Unknown]
